FAERS Safety Report 17229560 (Version 1)
Quarter: 2020Q1

REPORT INFORMATION
  Report Type: Spontaneous
  Country: PT (occurrence: PT)
  Receive Date: 20200103
  Receipt Date: 20200103
  Transmission Date: 20200409
  Serious: Yes (Death)
  Sender: FDA-Public Use
  Company Number: NVSC2020PT000452

PATIENT
  Age: 69 Year
  Sex: Female

DRUGS (9)
  1. DEXAMETHASONE. [Suspect]
     Active Substance: DEXAMETHASONE
     Indication: NATURAL KILLER-CELL LYMPHOBLASTIC LYMPHOMA
     Dosage: 40 MG (DAYS 2-4)
     Route: 048
     Dates: start: 20151207
  2. L-ASPARAGINASE [Suspect]
     Active Substance: ASPARAGINASE
     Indication: NATURAL KILLER-CELL LYMPHOBLASTIC LYMPHOMA
     Dosage: 1000 U (OVER 30 MIN, DAY 8)
     Route: 042
     Dates: start: 20151207
  3. MESNA. [Concomitant]
     Active Substance: MESNA
     Indication: PRODUCT USED FOR UNKNOWN INDICATION
     Dosage: 15 MG (10-15 MIN PRIOR TO THE START OF IFOSFAMIDE, DAYS 2?4)
     Route: 042
  4. ETOPOSIDE. [Suspect]
     Active Substance: ETOPOSIDE
     Indication: NATURAL KILLER-CELL LYMPHOBLASTIC LYMPHOMA
     Dosage: 100 MG (OVER 2 HOURS HOURS, DAYS 2 AND 4)
     Route: 042
     Dates: start: 20151207
  5. METHOTREXATE. [Suspect]
     Active Substance: METHOTREXATE
     Indication: NATURAL KILLER-CELL LYMPHOBLASTIC LYMPHOMA
     Dosage: 2000 MG
     Route: 042
     Dates: start: 20151207
  6. ONDANSETRON [Concomitant]
     Active Substance: ONDANSETRON
     Indication: PRODUCT USED FOR UNKNOWN INDICATION
     Dosage: 8 MG (8/8 HOUR, DAYS 1-3)
     Route: 042
  7. FOLINIC ACID [Concomitant]
     Active Substance: LEUCOVORIN
     Indication: PRODUCT USED FOR UNKNOWN INDICATION
     Dosage: 15 MG (36 HOURS AFTER THE START OF METHOTREXATE INFUSION)
     Route: 042
  8. L-ASPARAGINASE [Suspect]
     Active Substance: ASPARAGINASE
     Dosage: 6000 U (OVER 2 HOURS DAYS 8, 10, 12, 14, 16, 18 AND 20)
     Route: 042
  9. IFOSFAMIDE. [Suspect]
     Active Substance: IFOSFAMIDE
     Indication: NATURAL KILLER-CELL LYMPHOBLASTIC LYMPHOMA
     Dosage: 1500 MG (OVER 2 HOURS, DAYS 2-4)
     Route: 042
     Dates: start: 20151207

REACTIONS (4)
  - Multiple organ dysfunction syndrome [Fatal]
  - Pancytopenia [Fatal]
  - Product use in unapproved indication [Unknown]
  - Infection [Fatal]
